FAERS Safety Report 18443639 (Version 1)
Quarter: 2020Q4

REPORT INFORMATION
  Report Type: Spontaneous
  Country: US (occurrence: US)
  Receive Date: 20201029
  Receipt Date: 20201029
  Transmission Date: 20210114
  Serious: No
  Sender: FDA-Public Use
  Company Number: US-TRIS PHARMA, INC.-20US009128

PATIENT

DRUGS (1)
  1. QUILLIVANT XR [Suspect]
     Active Substance: METHYLPHENIDATE HYDROCHLORIDE
     Indication: ATTENTION DEFICIT HYPERACTIVITY DISORDER
     Dosage: 10 MILLILITER, QD
     Route: 048
     Dates: start: 20201007, end: 20201009

REACTIONS (5)
  - Irritability [Recovered/Resolved]
  - Defiant behaviour [Recovered/Resolved]
  - Off label use [Unknown]
  - Anger [Recovered/Resolved]
  - Antisocial behaviour [Recovered/Resolved]

NARRATIVE: CASE EVENT DATE: 20201007
